FAERS Safety Report 5281173-8 (Version None)
Quarter: 2007Q1

REPORT INFORMATION
  Report Type: 
  Country: None (occurrence: None)
  Receive Date: 20070323
  Receipt Date: 20070312
  Transmission Date: 20070707
  Serious: Yes (Other)
  Sender: FDA-Public Use
  Company Number: 2007JP000711

PATIENT
  Age: 57 Year
  Sex: Female

DRUGS (7)
  1. VESICARE [Suspect]
     Indication: HYPERTONIC BLADDER
     Dosage: 5 MG, UID/QD, ORAL
     Route: 048
     Dates: start: 20060904, end: 20070215
  2. DILTIAZEM HYDROCHLORIDE [Concomitant]
  3. HANGE-SHASHIN-TO [Concomitant]
  4. KEISHIBUKURYOUGAN (HERBAL EXTRACT NOS) [Concomitant]
  5. LEVOFLOXACIN [Concomitant]
  6. BIOFERMIN R (STREPTOCOCCUS FAECALIS) [Concomitant]
  7. TRANEXAMIC ACID (TRANEXAMIC ACID) [Concomitant]

REACTIONS (4)
  - ALANINE AMINOTRANSFERASE INCREASED [None]
  - ASPARTATE AMINOTRANSFERASE INCREASED [None]
  - HEPATIC FUNCTION ABNORMAL [None]
  - MALAISE [None]
